FAERS Safety Report 6414771-6 (Version None)
Quarter: 2009Q4

REPORT INFORMATION
  Report Type: 
  Country: None (occurrence: None)
  Receive Date: 20091026
  Receipt Date: 20091013
  Transmission Date: 20100525
  Serious: Yes (Death, Life-Threatening, Hospitalization)
  Sender: FDA-Public Use
  Company Number: DE-GENENTECH-291277

PATIENT
  Sex: Female

DRUGS (9)
  1. RITUXIMAB [Suspect]
     Indication: MALIGNANT LYMPHOID NEOPLASM
     Dosage: 800 MG/M2, UNK
     Route: 042
     Dates: start: 20090817
  2. ADRIAMYCIN PFS [Suspect]
     Indication: MALIGNANT LYMPHOID NEOPLASM
     Dosage: 70 MG/M2, UNK
     Route: 065
     Dates: start: 20090616
  3. BLEOMYCIN SULFATE [Suspect]
     Indication: MALIGNANT LYMPHOID NEOPLASM
     Dosage: 20 MG/M2, UNK
     Route: 065
     Dates: start: 20090616
  4. PROCARBAZINE [Suspect]
     Indication: MALIGNANT LYMPHOID NEOPLASM
     Dosage: 250 MG/M2, UNK
     Route: 065
     Dates: start: 20090616
  5. VINCRISTINE [Suspect]
     Indication: MALIGNANT LYMPHOID NEOPLASM
     Dosage: 2 MG/M2, UNK
     Route: 065
     Dates: start: 20090616
  6. PREDNISONE TAB [Suspect]
     Indication: MALIGNANT LYMPHOID NEOPLASM
     Dosage: 8.5 MG/M2, UNK
     Route: 065
     Dates: start: 20090616
  7. ETOPOSIDE [Suspect]
     Indication: MALIGNANT LYMPHOID NEOPLASM
     Dosage: 370 MG/M2, UNK
     Route: 065
     Dates: start: 20090616
  8. CYCLOPHOSPHAMIDE [Suspect]
     Indication: MALIGNANT LYMPHOID NEOPLASM
     Dosage: 2300 MG/M2, UNK
     Route: 065
     Dates: start: 20090616
  9. NEULASTA [Concomitant]
     Indication: DRUG USE FOR UNKNOWN INDICATION
     Dosage: UNK
     Dates: end: 20090916

REACTIONS (4)
  - DIARRHOEA [None]
  - FEBRILE NEUTROPENIA [None]
  - SEPTIC SHOCK [None]
  - STOMATITIS [None]
